FAERS Safety Report 7085785-0 (Version None)
Quarter: 2010Q4

REPORT INFORMATION
  Report Type: 
  Country: None (occurrence: None)
  Receive Date: 20101105
  Receipt Date: 20101026
  Transmission Date: 20110411
  Serious: Yes (Hospitalization)
  Sender: FDA-Public Use
  Company Number: BR-ROCHE-730693

PATIENT
  Sex: Female
  Weight: 87 kg

DRUGS (9)
  1. TOCILIZUMAB [Suspect]
     Indication: RHEUMATOID ARTHRITIS
     Dosage: FORM: INFUSION
     Route: 042
     Dates: start: 20100130
  2. TOCILIZUMAB [Suspect]
     Route: 042
     Dates: start: 20100228
  3. TOCILIZUMAB [Suspect]
     Route: 042
     Dates: start: 20100330
  4. TOCILIZUMAB [Suspect]
     Route: 042
  5. TOCILIZUMAB [Suspect]
     Route: 042
  6. TOCILIZUMAB [Suspect]
     Route: 042
     Dates: end: 20100601
  7. AZATHIOPRINE [Suspect]
     Indication: RHEUMATOID ARTHRITIS
     Route: 065
     Dates: start: 20100901
  8. ARAVA [Suspect]
     Indication: RHEUMATOID ARTHRITIS
     Route: 065
  9. DIOVAN [Concomitant]

REACTIONS (6)
  - BLOOD CHOLESTEROL INCREASED [None]
  - CHEST PAIN [None]
  - HYPERTENSION [None]
  - PANCREATITIS [None]
  - TACHYCARDIA [None]
  - WEIGHT INCREASED [None]
